FAERS Safety Report 22009523 (Version 1)
Quarter: 2023Q1

REPORT INFORMATION
  Report Type: Spontaneous
  Country: JP (occurrence: JP)
  Receive Date: 20230220
  Receipt Date: 20230220
  Transmission Date: 20230418
  Serious: Yes (Other)
  Sender: FDA-Public Use
  Company Number: JP-GEHPL-2023JSU001011AA

PATIENT
  Sex: Female

DRUGS (2)
  1. OMNIPAQUE [Suspect]
     Active Substance: IOHEXOL
     Indication: Computerised tomogram
     Dosage: UNK, SINGLE
     Route: 065
     Dates: start: 20230126, end: 20230126
  2. OMNIPAQUE [Suspect]
     Active Substance: IOHEXOL
     Indication: Papillary thyroid cancer

REACTIONS (4)
  - Sneezing [Recovered/Resolved]
  - Erythema [Unknown]
  - Rash [Unknown]
  - Cough [Recovered/Resolved]

NARRATIVE: CASE EVENT DATE: 20230126
